FAERS Safety Report 5833505-7 (Version None)
Quarter: 2008Q3

REPORT INFORMATION
  Report Type: 
  Country: None (occurrence: None)
  Receive Date: 20080804
  Receipt Date: 20080804
  Transmission Date: 20090109
  Serious: Yes (Other)
  Sender: FDA-Public Use
  Company Number: None

PATIENT
  Sex: Female
  Weight: 104.3273 kg

DRUGS (2)
  1. CIPROFLOXACIN HCL [Suspect]
     Indication: CYSTITIS
     Dosage: 500MG 2 TIMES/DAY PO,
     Route: 048
     Dates: start: 20080731
  2. CIPROFLOXACIN HCL [Suspect]
     Indication: URINARY TRACT INFECTION
     Dosage: 500MG 2 TIMES/DAY PO,
     Route: 048
     Dates: start: 20080731

REACTIONS (3)
  - ARTHRALGIA [None]
  - BACK PAIN [None]
  - NAUSEA [None]
